FAERS Safety Report 19630252 (Version 3)
Quarter: 2021Q3

REPORT INFORMATION
  Report Type: Spontaneous
  Country: US (occurrence: US)
  Receive Date: 20210728
  Receipt Date: 20210927
  Transmission Date: 20211014
  Serious: No
  Sender: FDA-Public Use
  Company Number: US-SA-2021SA243598

PATIENT
  Age: 64 Year
  Sex: Female

DRUGS (2)
  1. AUBAGIO [Suspect]
     Active Substance: TERIFLUNOMIDE
     Dosage: 7 MG, QD
     Route: 048
     Dates: start: 20171016
  2. AUBAGIO [Suspect]
     Active Substance: TERIFLUNOMIDE
     Indication: MULTIPLE SCLEROSIS
     Dosage: 7 MG, QD
     Route: 048
     Dates: start: 20150822

REACTIONS (11)
  - Cognitive disorder [Unknown]
  - Muscle spasticity [Not Recovered/Not Resolved]
  - Pain [Unknown]
  - Sensory disturbance [Unknown]
  - Headache [Not Recovered/Not Resolved]
  - Product dose omission issue [Unknown]
  - Musculoskeletal stiffness [Not Recovered/Not Resolved]
  - Balance disorder [Not Recovered/Not Resolved]
  - Bladder disorder [Not Recovered/Not Resolved]
  - Gastrointestinal disorder [Not Recovered/Not Resolved]
  - Condition aggravated [Not Recovered/Not Resolved]
